FAERS Safety Report 25548132 (Version 1)
Quarter: 2025Q3

REPORT INFORMATION
  Report Type: Spontaneous
  Country: GB (occurrence: GB)
  Receive Date: 20250714
  Receipt Date: 20250714
  Transmission Date: 20251021
  Serious: Yes (Other)
  Sender: BAXTER
  Company Number: GB-BAXTER-2025BAX018012

PATIENT
  Sex: Male

DRUGS (3)
  1. SODIUM CHLORIDE [Suspect]
     Active Substance: SODIUM CHLORIDE
     Route: 042
  2. WATER FOR INJECTION [Suspect]
     Active Substance: WATER
     Route: 042
  3. INFLIXIMAB [Suspect]
     Active Substance: INFLIXIMAB
     Indication: Colitis ulcerative
     Dosage: 490 MG, EVERY 6 WK
     Route: 042

REACTIONS (1)
  - Arterial stenosis [Not Recovered/Not Resolved]
